FAERS Safety Report 12806288 (Version 1)
Quarter: 2016Q4

REPORT INFORMATION
  Report Type: Spontaneous
  Country: US (occurrence: US)
  Receive Date: 20161003
  Receipt Date: 20161003
  Transmission Date: 20170207
  Serious: Yes (Disabling, Other)
  Sender: FDA-Public Use
  Company Number: None

PATIENT
  Age: 60 Year
  Sex: Female
  Weight: 88.2 kg

DRUGS (2)
  1. HYOSCYAMINE SULFATE 0.125 MG [Suspect]
     Active Substance: HYOSCYAMINE SULFATE
     Indication: DIARRHOEA
     Route: 048
     Dates: start: 20160401, end: 20160929
  2. HYOSCYAMINE SULFATE 0.125 MG [Suspect]
     Active Substance: HYOSCYAMINE SULFATE
     Indication: MUSCLE SPASMS
     Route: 048
     Dates: start: 20160401, end: 20160929

REACTIONS (6)
  - Confusional state [None]
  - Vision blurred [None]
  - Dysstasia [None]
  - Dizziness [None]
  - Dysarthria [None]
  - Heart rate increased [None]

NARRATIVE: CASE EVENT DATE: 20160401
